FAERS Safety Report 11441562 (Version 1)
Quarter: 2015Q3

REPORT INFORMATION
  Report Type: Spontaneous
  Country: KR (occurrence: KR)
  Receive Date: 20150901
  Receipt Date: 20150901
  Transmission Date: 20151125
  Serious: Yes (Hospitalization)
  Sender: FDA-Public Use
  Company Number: KR-NOVOPROD-461885

PATIENT
  Age: 66 Year
  Sex: Female

DRUGS (1)
  1. NOVOMIX 30 FLEXPEN [Suspect]
     Active Substance: INSULIN ASPART
     Indication: TYPE 2 DIABETES MELLITUS
     Dosage: 34 U, QD (26 UNITS IN THE MORNING AND 8 UNITS IN THE EVENING)
     Route: 065
     Dates: start: 201504

REACTIONS (2)
  - Urinary tract infection [Unknown]
  - Dehydration [Unknown]
